FAERS Safety Report 23255853 (Version 1)
Quarter: 2023Q4

REPORT INFORMATION
  Report Type: Spontaneous
  Country: US (occurrence: None)
  Receive Date: 20231204
  Receipt Date: 20231204
  Transmission Date: 20240110
  Serious: No
  Sender: FDA-Public Use
  Company Number: US-ARIS GLOBAL-RDH202305-000073

PATIENT
  Age: 66 Year
  Sex: Female
  Weight: 88.9 kg

DRUGS (1)
  1. TALICIA [Suspect]
     Active Substance: AMOXICILLIN\OMEPRAZOLE MAGNESIUM\RIFABUTIN
     Indication: Helicobacter infection
     Dosage: AS DIRECTED AT 7 O^CLOCK, 3 O^CLOCK AND 11 O^ CLOCK.
     Route: 048
     Dates: start: 20230201, end: 20230214

REACTIONS (1)
  - Treatment failure [Unknown]

NARRATIVE: CASE EVENT DATE: 20230201
